FAERS Safety Report 13245866 (Version 1)
Quarter: 2017Q1

REPORT INFORMATION
  Report Type: Spontaneous
  Country: TW (occurrence: TW)
  Receive Date: 20170217
  Receipt Date: 20170217
  Transmission Date: 20170428
  Serious: No
  Sender: FDA-Public Use
  Company Number: TW-PERNIX THERAPEUTICS-2016PT000259

PATIENT

DRUGS (1)
  1. CEFTIBUTEN. [Suspect]
     Active Substance: CEFTIBUTEN
     Indication: PNEUMONIA
     Dosage: 200 MG, UNK
     Route: 048
     Dates: start: 20160808, end: 20160814

REACTIONS (1)
  - Rash [Unknown]

NARRATIVE: CASE EVENT DATE: 20160809
